FAERS Safety Report 14836668 (Version 3)
Quarter: 2018Q3

REPORT INFORMATION
  Report Type: Spontaneous
  Country: JP (occurrence: JP)
  Receive Date: 20180502
  Receipt Date: 20180702
  Transmission Date: 20181010
  Serious: Yes (Hospitalization, Other)
  Sender: FDA-Public Use
  Company Number: JP-ROCHE-2117653

PATIENT
  Age: 81 Year
  Sex: Male
  Weight: 67 kg

DRUGS (7)
  1. AMLODIPINE OD EMEC [Concomitant]
     Active Substance: AMLODIPINE BESYLATE
     Route: 048
  2. EDIROL [Concomitant]
     Active Substance: ELDECALCITOL
     Route: 048
     Dates: start: 20171114
  3. PREDNISOLONE. [Concomitant]
     Active Substance: PREDNISOLONE
     Route: 048
     Dates: start: 20171031
  4. TAMSULOSIN HYDROCHLORIDE. [Concomitant]
     Active Substance: TAMSULOSIN HYDROCHLORIDE
     Route: 048
     Dates: start: 20160914
  5. AZULFIDINE EN?TABS [Concomitant]
     Active Substance: SULFASALAZINE
     Route: 048
     Dates: start: 20170310
  6. ACTEMRA [Suspect]
     Active Substance: TOCILIZUMAB
     Indication: RHEUMATOID ARTHRITIS
     Route: 058
     Dates: start: 20180327, end: 20180410
  7. METHYCOBAL [Concomitant]
     Active Substance: METHYLCOBALAMIN
     Route: 048
     Dates: start: 20160916

REACTIONS (2)
  - Rheumatoid vasculitis [Unknown]
  - Purpura [Recovering/Resolving]

NARRATIVE: CASE EVENT DATE: 20180410
